FAERS Safety Report 10152507 (Version 1)
Quarter: 2014Q2

REPORT INFORMATION
  Report Type: Spontaneous
  Country: US (occurrence: US)
  Receive Date: 20140505
  Receipt Date: 20140505
  Transmission Date: 20141212
  Serious: No
  Sender: FDA-Public Use
  Company Number: US-BAYER-2014-065616

PATIENT
  Age: 67 Year
  Sex: Female
  Weight: 79.37 kg

DRUGS (3)
  1. ALEVE CAPLET [Suspect]
     Dosage: DF (DOSE AS USED)
     Route: 048
  2. BAYER ASPIRIN REGIMEN ADULT LOW STRENGTH [Suspect]
     Indication: ISCHAEMIC HEART DISEASE PROPHYLAXIS
  3. CENTRUM [Concomitant]

REACTIONS (2)
  - Incorrect dose administered [None]
  - Intentional product misuse [None]
